FAERS Safety Report 25811529 (Version 5)
Quarter: 2025Q4

REPORT INFORMATION
  Report Type: Spontaneous
  Country: EU (occurrence: None)
  Receive Date: 20250917
  Receipt Date: 20251031
  Transmission Date: 20260118
  Serious: Yes (Hospitalization)
  Sender: CHIESI
  Company Number: EU-CHIESI-2025CHF06439

PATIENT
  Age: 32 Year
  Sex: Female
  Weight: 61.7 kg

DRUGS (3)
  1. LAMZEDE [Suspect]
     Active Substance: VELMANASE ALFA-TYCV
     Indication: Alpha-mannosidosis
     Dosage: 60 MILLIGRAM, QW
     Dates: start: 20191001, end: 20250903
  2. LAMZEDE [Suspect]
     Active Substance: VELMANASE ALFA-TYCV
     Dosage: 60 MILLIGRAM, QW
     Dates: start: 20250917
  3. CETIRIZINE [Concomitant]
     Active Substance: CETIRIZINE HYDROCHLORIDE
     Indication: Premedication
     Dosage: 10 MILLIGRAM, QD
     Dates: start: 20240717

REACTIONS (4)
  - Femur fracture [Not Recovered/Not Resolved]
  - Fall [Recovered/Resolved]
  - Arthralgia [Not Recovered/Not Resolved]
  - Joint swelling [Not Recovered/Not Resolved]

NARRATIVE: CASE EVENT DATE: 20250101
